FAERS Safety Report 10036413 (Version 2)
Quarter: 2014Q1

REPORT INFORMATION
  Report Type: Spontaneous
  Country: US (occurrence: US)
  Receive Date: 20140325
  Receipt Date: 20140325
  Transmission Date: 20141002
  Serious: Yes (Death)
  Sender: FDA-Public Use
  Company Number: US-TMC-CABO-13003466

PATIENT
  Age: 56 Year
  Sex: Male

DRUGS (2)
  1. COMETRIQ [Suspect]
     Indication: THYROID CANCER
     Dosage: 60 MG, QD
     Route: 048
     Dates: start: 20130220, end: 20131115
  2. COMETRIQ [Suspect]
     Dosage: 60 MG, QD
     Route: 048
     Dates: start: 2013, end: 20140303

REACTIONS (4)
  - Death [Fatal]
  - Dyspnoea [Unknown]
  - Dry throat [Unknown]
  - Viral infection [Unknown]
